FAERS Safety Report 24604496 (Version 1)
Quarter: 2024Q4

REPORT INFORMATION
  Report Type: Spontaneous
  Country: JP (occurrence: JP)
  Receive Date: 20241111
  Receipt Date: 20241111
  Transmission Date: 20250114
  Serious: Yes (Death)
  Sender: ELI LILLY AND COMPANY
  Company Number: JP-NShinyaku-EVA202407757ZZLILLY

PATIENT
  Age: 78 Year
  Sex: Male
  Weight: 69 kg

DRUGS (12)
  1. TADALAFIL [Suspect]
     Active Substance: TADALAFIL
     Indication: Pulmonary hypertension
     Dosage: UNKNOWN
     Route: 048
  2. EDOXABAN TOSYLATE [Concomitant]
     Active Substance: EDOXABAN TOSYLATE
     Dosage: UNKNOWN
  3. BISOPROLOL [Concomitant]
     Active Substance: BISOPROLOL\BISOPROLOL FUMARATE
  4. EMPAGLIFLOZIN [Concomitant]
     Active Substance: EMPAGLIFLOZIN
  5. ESOMEPRAZOLE [Concomitant]
     Active Substance: ESOMEPRAZOLE
  6. FUROSEMIDE [Concomitant]
     Active Substance: FUROSEMIDE
  7. DEFERASIROX [Concomitant]
     Active Substance: DEFERASIROX
     Dosage: UNKNOWN
  8. LINAGLIPTIN [Concomitant]
     Active Substance: LINAGLIPTIN
  9. MIGLITOL [Concomitant]
     Active Substance: MIGLITOL
  10. RYZODEG 70/30 [Concomitant]
     Active Substance: INSULIN ASPART\INSULIN DEGLUDEC
     Dosage: UNKNOWN
  11. DOBUTAMINE [Concomitant]
     Active Substance: DOBUTAMINE HYDROCHLORIDE
     Dosage: UNKNOWN
  12. NOREPINEPHRINE [Concomitant]
     Active Substance: NOREPINEPHRINE\NOREPINEPHRINE BITARTRATE
     Dosage: UNKNOWN

REACTIONS (2)
  - Increased ventricular preload [Fatal]
  - Haemodynamic instability [Fatal]
